FAERS Safety Report 11806301 (Version 1)
Quarter: 2015Q4

REPORT INFORMATION
  Report Type: Spontaneous
  Country: RO (occurrence: RO)
  Receive Date: 20151207
  Receipt Date: 20151207
  Transmission Date: 20160305
  Serious: Yes (Hospitalization, Other)
  Sender: FDA-Public Use
  Company Number: RO-GLAXOSMITHKLINE-RO2013GSK000436

PATIENT
  Age: 60 Year
  Sex: Male
  Weight: 65 kg

DRUGS (1)
  1. OMACOR [Suspect]
     Active Substance: OMEGA-3-ACID ETHYL ESTERS
     Indication: DYSLIPIDAEMIA
     Dosage: 1000 MG, 1D
     Dates: start: 20130326

REACTIONS (2)
  - Off label use [Not Recovered/Not Resolved]
  - Acute myocardial infarction [Recovered/Resolved]
